FAERS Safety Report 9406363 (Version 5)
Quarter: 2017Q3

REPORT INFORMATION
  Report Type: Report from Study
  Country: DE (occurrence: DE)
  Receive Date: 20130718
  Receipt Date: 20170918
  Transmission Date: 20171128
  Serious: Yes (Hospitalization, Disabling, Other)
  Sender: FDA-Public Use
  Company Number: DE-ROCHE-1247139

PATIENT
  Sex: Female

DRUGS (14)
  1. RITUXIMAB. [Suspect]
     Active Substance: RITUXIMAB
     Indication: B-CELL LYMPHOMA
     Dosage: DATE OF LAST DOSE PRIOR TO SAE: 11/JUN/2013
     Route: 042
     Dates: start: 20130319
  2. PEGFILGRASTIM [Suspect]
     Active Substance: PEGFILGRASTIM
     Indication: B-CELL LYMPHOMA
     Route: 058
     Dates: start: 20130412, end: 20130630
  3. MESNA. [Concomitant]
     Active Substance: MESNA
     Indication: PROPHYLAXIS
     Route: 048
     Dates: start: 20130410, end: 20130628
  4. LEVOFLOXACIN. [Concomitant]
     Active Substance: LEVOFLOXACIN
     Indication: PROPHYLAXIS
     Route: 048
     Dates: start: 20130414, end: 20130708
  5. RAMIPRIL. [Concomitant]
     Active Substance: RAMIPRIL
     Indication: HYPERTENSION
     Route: 048
  6. PREDNISONE. [Suspect]
     Active Substance: PREDNISONE
     Indication: B-CELL LYMPHOMA
     Route: 048
     Dates: start: 20130409, end: 20130702
  7. METHOTREXATE. [Suspect]
     Active Substance: METHOTREXATE
     Indication: B-CELL LYMPHOMA
     Route: 042
     Dates: start: 20130321, end: 20130321
  8. CYCLOPHOSPHAMIDE. [Suspect]
     Active Substance: CYCLOPHOSPHAMIDE
     Indication: B-CELL LYMPHOMA
     Route: 042
     Dates: start: 20130410, end: 20130628
  9. LEUCOVORIN. [Suspect]
     Active Substance: LEUCOVORIN
     Indication: B-CELL LYMPHOMA
     Route: 042
     Dates: start: 20130322
  10. DOXORUBICIN [Suspect]
     Active Substance: DOXORUBICIN
     Indication: B-CELL LYMPHOMA
     Route: 042
     Dates: start: 20130410, end: 20130628
  11. GRANISETRON [Concomitant]
     Active Substance: GRANISETRON
     Route: 042
     Dates: start: 20130410, end: 20130628
  12. ACICLOVIR [Concomitant]
     Active Substance: ACYCLOVIR
     Indication: PROPHYLAXIS
     Route: 048
     Dates: start: 20130410
  13. VINCRISTINE [Suspect]
     Active Substance: VINCRISTINE
     Indication: B-CELL LYMPHOMA
     Route: 042
     Dates: start: 20130410, end: 20130612
  14. SULFAMETHOXAZOLE/TRIMETHOPRIM [Concomitant]
     Active Substance: SULFAMETHOXAZOLE\TRIMETHOPRIM
     Indication: PROPHYLAXIS
     Route: 048
     Dates: start: 20130413

REACTIONS (6)
  - Pulmonary embolism [Unknown]
  - Atrial fibrillation [Recovered/Resolved with Sequelae]
  - Mitral valve disease [Recovered/Resolved]
  - Cardiomyopathy [Recovered/Resolved]
  - General physical health deterioration [Recovered/Resolved]
  - Pulmonary embolism [Recovered/Resolved with Sequelae]

NARRATIVE: CASE EVENT DATE: 20130708
